FAERS Safety Report 25903846 (Version 1)
Quarter: 2025Q4

REPORT INFORMATION
  Report Type: Spontaneous
  Country: US (occurrence: US)
  Receive Date: 20251010
  Receipt Date: 20251010
  Transmission Date: 20260117
  Serious: No
  Sender: EMCURE PHARMACEUTICALS LTD
  Company Number: US-AVET LIFESCIENCES LTD-2025-AVET-000308

PATIENT

DRUGS (7)
  1. LABETALOL [Suspect]
     Active Substance: LABETALOL
     Indication: Product used for unknown indication
     Dosage: UNK
     Route: 065
  2. DUPIXENT [Suspect]
     Active Substance: DUPILUMAB
     Indication: Eczema
     Dosage: 600 MG, LOADING DOSE, STRENGTH 300MG/2ML
     Route: 058
     Dates: start: 20240405
  3. DUPIXENT [Suspect]
     Active Substance: DUPILUMAB
     Indication: Dermatitis atopic
     Dosage: 300 MG Q0 W, MAINTANANCE DOSE
     Route: 058
     Dates: start: 20240419
  4. DUPIXENT [Suspect]
     Active Substance: DUPILUMAB
     Dosage: FEB -2025, 300 MG EVERY 28 DAYS
     Dates: start: 202502
  5. DUPIXENT [Suspect]
     Active Substance: DUPILUMAB
     Dosage: MAR -2025, 300 MG EVERY 28 DAYS
     Route: 065
     Dates: start: 202503
  6. DUPIXENT [Suspect]
     Active Substance: DUPILUMAB
     Dosage: 300 MG, 1 DOSE PER 3W
     Route: 065
     Dates: start: 2025
  7. DUPIXENT [Suspect]
     Active Substance: DUPILUMAB
     Dosage: 300 MG, 1 DOSE PER 4W
     Route: 065
     Dates: start: 2025

REACTIONS (5)
  - Skin burning sensation [Unknown]
  - Condition aggravated [Unknown]
  - Pruritus [Recovered/Resolved]
  - Rash erythematous [Unknown]
  - Drug hypersensitivity [Unknown]

NARRATIVE: CASE EVENT DATE: 20250801
